FAERS Safety Report 8540217-8 (Version None)
Quarter: 2012Q3

REPORT INFORMATION
  Report Type: 
  Country: None (occurrence: None)
  Receive Date: 20120726
  Receipt Date: 20120717
  Transmission Date: 20120928
  Serious: Yes (Hospitalization)
  Sender: FDA-Public Use
  Company Number: US-ASTRAZENECA-2012SE50378

PATIENT
  Age: 59 Year
  Sex: Male
  Weight: 81.6 kg

DRUGS (11)
  1. PRAVASTATIN [Concomitant]
  2. TREPADONE [Concomitant]
  3. SEROQUEL [Suspect]
     Route: 048
  4. AMITRIPTYLINE HYDROCHLORIDE [Suspect]
     Route: 065
  5. ZOLPIDEM [Concomitant]
  6. ACTOPLUS MET [Concomitant]
  7. LEVOTHYROXINE SODIUM [Concomitant]
  8. GABAPENTIN [Concomitant]
  9. MAXIL [Concomitant]
  10. LEVOFLOXACIN [Concomitant]
  11. TRILIPIX [Concomitant]

REACTIONS (4)
  - DRUG DOSE OMISSION [None]
  - INSOMNIA [None]
  - WHITE BLOOD CELL COUNT DECREASED [None]
  - DIABETES MELLITUS [None]
